FAERS Safety Report 7073976-4 (Version None)
Quarter: 2010Q4

REPORT INFORMATION
  Report Type: 
  Country: None (occurrence: None)
  Receive Date: 20101029
  Receipt Date: 20101022
  Transmission Date: 20110411
  Serious: Yes (Death, Hospitalization)
  Sender: FDA-Public Use
  Company Number: DE-ELI_LILLY_AND_COMPANY-10-11-00133

PATIENT
  Sex: Female
  Weight: 85.5 kg

DRUGS (3)
  1. NECITUMUMAB (11F8) (LY3012211) [Suspect]
     Indication: NON-SMALL CELL LUNG CANCER
     Dosage: 800 MG,2 IN 3 WK
     Route: 042
     Dates: start: 20100518, end: 20100608
  2. GEMCITABINE HCL [Suspect]
     Indication: NON-SMALL CELL LUNG CANCER
     Dosage: 2325 MG,2 IN 3 WK
     Route: 042
     Dates: start: 20100518, end: 20100608
  3. CISPLATIN [Suspect]
     Indication: NON-SMALL CELL LUNG CANCER
     Dosage: 140 MG,1 IN 3 WK
     Route: 042
     Dates: start: 20100518, end: 20100608

REACTIONS (1)
  - PNEUMONIA [None]
